FAERS Safety Report 6161048-2 (Version None)
Quarter: 2009Q2

REPORT INFORMATION
  Report Type: 
  Country: None (occurrence: None)
  Receive Date: 20090420
  Receipt Date: 20090408
  Transmission Date: 20091009
  Serious: Yes (Hospitalization)
  Sender: FDA-Public Use
  Company Number: JP-PFIZER INC-2009182089

PATIENT

DRUGS (9)
  1. SUNITINIB MALATE [Suspect]
     Indication: METASTATIC RENAL CELL CARCINOMA
     Dosage: 50 MG, 1X/DAY
     Route: 048
     Dates: start: 20080905, end: 20090212
  2. SIGMART [Concomitant]
     Dosage: UNK
     Route: 048
  3. GLIMICRON [Concomitant]
     Dosage: UNK
     Route: 048
  4. PARIET [Concomitant]
     Dosage: UNK
     Route: 048
  5. NITROGLYCERIN [Concomitant]
     Dosage: UNK
  6. OPALMON [Concomitant]
     Dosage: UNK
     Route: 048
     Dates: start: 20081003
  7. NORVASC [Concomitant]
     Dosage: UNK
     Route: 048
     Dates: start: 20080911
  8. ALDACTONE [Concomitant]
     Dosage: UNK
     Route: 048
     Dates: start: 20081010
  9. LASIX [Concomitant]
     Dosage: UNK
     Route: 048
     Dates: start: 20080926

REACTIONS (1)
  - ALTERED STATE OF CONSCIOUSNESS [None]
